FAERS Safety Report 10283452 (Version 1)
Quarter: 2014Q3

REPORT INFORMATION
  Report Type: Spontaneous
  Country: US (occurrence: None)
  Receive Date: 20140703
  Receipt Date: 20140703
  Transmission Date: 20150326
  Serious: Yes (Death)
  Sender: FDA-Public Use
  Company Number: UNT-2014-001876

PATIENT
  Age: 35 Year
  Sex: Female
  Weight: 55.3 kg

DRUGS (2)
  1. REMODULIN [Suspect]
     Active Substance: TREPROSTINIL
     Indication: COR PULMONALE CHRONIC
     Dosage: .072/UG/KG/MT.
     Route: 058
     Dates: start: 20120501
  2. TRACLEER /07587701/ (BOSENTAN) [Concomitant]

REACTIONS (1)
  - Death [None]
